FAERS Safety Report 16540118 (Version 1)
Quarter: 2019Q3

REPORT INFORMATION
  Report Type: Spontaneous
  Country: PT (occurrence: PT)
  Receive Date: 20190708
  Receipt Date: 20190708
  Transmission Date: 20191004
  Serious: Yes (Hospitalization, Other)
  Sender: FDA-Public Use
  Company Number: PT-MYLANLABS-2019M1061646

PATIENT
  Age: 72 Year
  Sex: Male

DRUGS (4)
  1. HYDROCHLOROTHIAZIDE. [Suspect]
     Active Substance: HYDROCHLOROTHIAZIDE
     Indication: HYPERTENSION
     Dosage: 12.5 MILLIGRAM
  2. CLARITHROMYCIN. [Suspect]
     Active Substance: CLARITHROMYCIN
     Indication: PRODUCT USED FOR UNKNOWN INDICATION
     Dosage: UNK
  3. AMOXICILLIN. [Suspect]
     Active Substance: AMOXICILLIN
     Indication: PRODUCT USED FOR UNKNOWN INDICATION
     Dosage: UNK
  4. VALSARTAN. [Concomitant]
     Active Substance: VALSARTAN
     Indication: HYPERTENSION
     Dosage: 80 MILLIGRAM

REACTIONS (17)
  - Respiratory failure [Recovering/Resolving]
  - Bradycardia [Unknown]
  - Anaphylactic reaction [Unknown]
  - Hyperlactacidaemia [Unknown]
  - Oxygen saturation decreased [Recovering/Resolving]
  - Non-cardiogenic pulmonary oedema [Recovering/Resolving]
  - Flushing [Unknown]
  - Leukopenia [Unknown]
  - Tachypnoea [Recovering/Resolving]
  - Rales [Recovering/Resolving]
  - Hypotension [Unknown]
  - Dyspnoea [Recovering/Resolving]
  - Thrombocytopenia [Unknown]
  - Nausea [Unknown]
  - Vomiting [Unknown]
  - Tryptase increased [Unknown]
  - Acute kidney injury [Unknown]
